FAERS Safety Report 9710076 (Version 2)
Quarter: 2013Q4

REPORT INFORMATION
  Report Type: Spontaneous
  Country: IT (occurrence: IT)
  Receive Date: 20131126
  Receipt Date: 20131204
  Transmission Date: 20140711
  Serious: Yes (Hospitalization)
  Sender: FDA-Public Use
  Company Number: IT-RANBAXY-2013RR-75370

PATIENT
  Age: 26 Year
  Sex: Female

DRUGS (2)
  1. AMOXICILLIN [Suspect]
     Indication: OROPHARYNGEAL PAIN
     Dosage: 1 DF, COMPLETE
     Route: 048
     Dates: start: 20131103, end: 20131103
  2. VENTOLIN [Concomitant]
     Indication: ASTHMA
     Dosage: UNK
     Route: 065

REACTIONS (3)
  - Dyspepsia [Recovering/Resolving]
  - Eyelid oedema [Recovering/Resolving]
  - Tongue oedema [Recovering/Resolving]
